FAERS Safety Report 24197486 (Version 1)
Quarter: 2024Q3

REPORT INFORMATION
  Report Type: Spontaneous
  Country: US (occurrence: US)
  Receive Date: 20240811
  Receipt Date: 20240811
  Transmission Date: 20241016
  Serious: No
  Sender: NOVARTIS
  Company Number: US-002147023-NVSC2024US162775

PATIENT
  Sex: Male

DRUGS (2)
  1. TAFINLAR [Suspect]
     Active Substance: DABRAFENIB MESYLATE
     Indication: Malignant nervous system neoplasm
     Dosage: 150 MG, BID
     Route: 048
     Dates: start: 202401
  2. MEKINIST [Suspect]
     Active Substance: TRAMETINIB DIMETHYL SULFOXIDE
     Indication: Malignant nervous system neoplasm
     Dosage: 2 MG, QD
     Route: 048
     Dates: start: 202401

REACTIONS (2)
  - Pyrexia [Unknown]
  - Nausea [Unknown]
